FAERS Safety Report 22102530 (Version 1)
Quarter: 2023Q1

REPORT INFORMATION
  Report Type: Spontaneous
  Country: US (occurrence: None)
  Receive Date: 20230316
  Receipt Date: 20230316
  Transmission Date: 20230417
  Serious: Yes (Other)
  Sender: FDA-Public Use
  Company Number: US-ADIENNEP-2023AD000121

PATIENT
  Sex: Female

DRUGS (6)
  1. THIOTEPA [Suspect]
     Active Substance: THIOTEPA
     Indication: Allogenic stem cell transplantation
     Dosage: 8 MG/KG, DAY -3
  2. MELPHALAN [Suspect]
     Active Substance: MELPHALAN
     Indication: Allogenic stem cell transplantation
     Dosage: 140 MG/M2, DAY -2
  3. ALEMTUZUMAB [Suspect]
     Active Substance: ALEMTUZUMAB
     Indication: Allogenic stem cell transplantation
     Dosage: 1 MG/KG, DAYS -14 TO -10
  4. FLUDARABINE [Suspect]
     Active Substance: FLUDARABINE PHOSPHATE
     Indication: Allogenic stem cell transplantation
     Dosage: 150 MG/M2, DAYS -7 TO -3
  5. TACROLIMUS [Suspect]
     Active Substance: TACROLIMUS
     Indication: Prophylaxis against graft versus host disease
  6. MYCOPHENOLATE MOFETIL [Suspect]
     Active Substance: MYCOPHENOLATE MOFETIL
     Indication: Prophylaxis against graft versus host disease

REACTIONS (11)
  - Mucosal inflammation [Unknown]
  - Gastroenteritis [Unknown]
  - Thrombocytopenia [Unknown]
  - Engraftment syndrome [Unknown]
  - Hypervolaemia [Unknown]
  - Hypertension [Unknown]
  - Hypertransaminasaemia [Unknown]
  - Hypogammaglobulinaemia [Unknown]
  - Cytomegalovirus infection reactivation [Unknown]
  - Cardiac dysfunction [Recovered/Resolved]
  - Left ventricle outflow tract obstruction [Recovered/Resolved]
